FAERS Safety Report 5449665-6 (Version None)
Quarter: 2007Q3

REPORT INFORMATION
  Report Type: 
  Country: None (occurrence: None)
  Receive Date: 20070910
  Receipt Date: 20070830
  Transmission Date: 20080115
  Serious: Yes (Hospitalization)
  Sender: FDA-Public Use
  Company Number: 2007JP003883

PATIENT
  Age: 83 Year
  Sex: Female

DRUGS (2)
  1. VESICARE [Suspect]
     Indication: HYPERTONIC BLADDER
     Dosage: 2.5 MG, UNKNOWN/D, ORAL; 5 MG, UNKNOWN/D, ORAL
     Route: 048
     Dates: start: 20070221, end: 20070306
  2. VESICARE [Suspect]
     Indication: HYPERTONIC BLADDER
     Dosage: 2.5 MG, UNKNOWN/D, ORAL; 5 MG, UNKNOWN/D, ORAL
     Route: 048
     Dates: start: 20070307

REACTIONS (3)
  - ATRIOVENTRICULAR BLOCK COMPLETE [None]
  - DEHYDRATION [None]
  - ELECTROLYTE IMBALANCE [None]
